FAERS Safety Report 25716899 (Version 1)
Quarter: 2025Q3

REPORT INFORMATION
  Report Type: Spontaneous
  Country: US (occurrence: US)
  Receive Date: 20250822
  Receipt Date: 20250822
  Transmission Date: 20251021
  Serious: Yes (Other)
  Sender: RK PHARMA
  Company Number: US-RK PHARMA, INC-20250800127

PATIENT

DRUGS (3)
  1. MITOMYCIN [Suspect]
     Active Substance: MITOMYCIN
     Indication: Open angle glaucoma
     Route: 057
  2. MITOMYCIN [Suspect]
     Active Substance: MITOMYCIN
  3. EPINEPHRINE\LIDOCAINE HYDROCHLORIDE [Concomitant]
     Active Substance: EPINEPHRINE\LIDOCAINE HYDROCHLORIDE
     Indication: Conjunctival bleb
     Route: 065

REACTIONS (2)
  - Scleromalacia [Unknown]
  - Neurotrophic keratopathy [Unknown]
